FAERS Safety Report 8499082-X (Version None)
Quarter: 2012Q2

REPORT INFORMATION
  Report Type: 
  Country: None (occurrence: None)
  Receive Date: 20120405
  Receipt Date: 20100311
  Transmission Date: 20120825
  Serious: Yes (Hospitalization)
  Sender: FDA-Public Use
  Company Number: PHEH2010US03062

PATIENT

DRUGS (1)
  1. RECLAST [Suspect]
     Dosage: 5 MG, YEARLY, INTRAENOUS

REACTIONS (2)
  - INFLUENZA LIKE ILLNESS [None]
  - MYALGIA [None]
